FAERS Safety Report 7584279-3 (Version None)
Quarter: 2011Q2

REPORT INFORMATION
  Report Type: 
  Country: None (occurrence: None)
  Receive Date: 20110630
  Receipt Date: 20110622
  Transmission Date: 20111010
  Serious: Yes (Hospitalization, Other)
  Sender: FDA-Public Use
  Company Number: JP-GENZYME-THYM-1002555

PATIENT
  Sex: Male
  Weight: 53 kg

DRUGS (56)
  1. FLUDARA [Suspect]
     Indication: BONE MARROW CONDITIONING REGIMEN
     Dosage: UNK
     Route: 065
     Dates: start: 20100204, end: 20100208
  2. MELPHALAN HYDROCHLORIDE [Concomitant]
     Indication: BONE MARROW CONDITIONING REGIMEN
     Dosage: UNK
     Dates: start: 20100209, end: 20100210
  3. URSODIOL [Concomitant]
     Indication: PROPHYLAXIS
     Dosage: UNK
     Dates: start: 20100205, end: 20100430
  4. ITRACONAZOL A [Concomitant]
     Indication: INFECTION PROPHYLAXIS
     Dosage: UNK
     Dates: start: 20100401
  5. PIRARUBICIN HYDROCHLORIDE [Concomitant]
     Dosage: UNK
     Dates: start: 20090925, end: 20090925
  6. CYCLOPHOSPHAMIDE MONOHYDRATE [Concomitant]
     Dosage: UNK
     Dates: start: 20091120, end: 20091121
  7. MICAFUNGIN SODIUM [Concomitant]
     Indication: INFECTION PROPHYLAXIS
     Dosage: UNK
     Dates: start: 20100204, end: 20100331
  8. TACROLIMUS [Concomitant]
     Indication: PROPHYLAXIS AGAINST GRAFT VERSUS HOST DISEASE
     Dosage: UNK
     Dates: start: 20100211, end: 20100225
  9. METHOTREXATE [Concomitant]
     Indication: PROPHYLAXIS AGAINST GRAFT VERSUS HOST DISEASE
     Dosage: UNK
     Dates: start: 20100214, end: 20100214
  10. CEFTRIAXONE [Concomitant]
     Indication: INFECTION PROPHYLAXIS
     Dosage: UNK
     Dates: start: 20100228, end: 20100301
  11. VANCOMYCIN HCL [Concomitant]
     Indication: INFECTION PROPHYLAXIS
     Dosage: UNK
     Dates: start: 20100204, end: 20100305
  12. ZOVIRAX [Concomitant]
     Indication: INFECTION PROPHYLAXIS
     Dosage: UNK
     Dates: start: 20100205, end: 20100321
  13. PLATELETS, CONCENTRATED [Concomitant]
     Dosage: UNK
     Dates: start: 20100227, end: 20100227
  14. THYMOGLOBULIN [Suspect]
     Indication: BONE MARROW CONDITIONING REGIMEN
     Dosage: 66 MG, QD
     Route: 042
     Dates: start: 20100210, end: 20100211
  15. IFOSFAMIDE [Concomitant]
     Indication: EWING'S SARCOMA RECURRENT
     Dosage: UNK
     Dates: start: 20090803, end: 20090805
  16. CARBOPLATIN [Concomitant]
     Indication: EWING'S SARCOMA RECURRENT
     Dosage: UNK
     Dates: start: 20090805, end: 20090805
  17. CARBOPLATIN [Concomitant]
     Dosage: UNK
     Dates: start: 20090828, end: 20090828
  18. FAMOTIDINE [Concomitant]
     Indication: HAEMORRHAGE PROPHYLAXIS
     Dosage: UNK
     Dates: start: 20100204, end: 20100303
  19. TACROLIMUS [Concomitant]
     Dosage: UNK
     Dates: start: 20100226, end: 20100623
  20. PREDNISOLONE ACETATE [Concomitant]
     Indication: PROPHYLAXIS AGAINST GRAFT VERSUS HOST DISEASE
     Dosage: UNK
     Dates: start: 20100212, end: 20100326
  21. METHOTREXATE [Concomitant]
     Dosage: UNK
     Dates: start: 20100218, end: 20100218
  22. SULFAMETHOPRIM [Concomitant]
     Indication: INFECTION PROPHYLAXIS
     Dosage: UNK
     Dates: start: 20100225
  23. PREDNISOLONE [Concomitant]
     Dosage: UNK
     Dates: start: 20100711
  24. PLATELETS, CONCENTRATED [Concomitant]
     Dosage: UNK
     Dates: start: 20100726, end: 20100727
  25. PLATELETS, CONCENTRATED [Concomitant]
     Dosage: UNK
     Dates: start: 20100805, end: 20100806
  26. IFOSFAMIDE [Concomitant]
     Dosage: UNK
     Dates: start: 20090924, end: 20090926
  27. ETOPOSIDE [Concomitant]
     Dosage: UNK
     Dates: start: 20090824, end: 20090926
  28. CYCLOPHOSPHAMIDE MONOHYDRATE [Concomitant]
     Indication: EWING'S SARCOMA RECURRENT
     Dosage: UNK
     Dates: start: 20091026, end: 20091027
  29. CEFTRIAXONE [Concomitant]
     Dosage: UNK
     Dates: start: 20100806, end: 20100807
  30. POLYMYXIN B SULFATE [Concomitant]
     Indication: INFECTION PROPHYLAXIS
     Dosage: UNK
     Dates: start: 20100204, end: 20100305
  31. PLATELETS, CONCENTRATED [Concomitant]
     Indication: EWING'S SARCOMA RECURRENT
     Dosage: UNK
     Dates: start: 20100214, end: 20100215
  32. PIRARUBICIN HYDROCHLORIDE [Concomitant]
     Indication: EWING'S SARCOMA RECURRENT
     Dosage: UNK
     Dates: start: 20090804, end: 20090804
  33. PIRARUBICIN HYDROCHLORIDE [Concomitant]
     Dosage: UNK
     Dates: start: 20090827, end: 20090827
  34. CARBOPLATIN [Concomitant]
     Dosage: UNK
     Dates: start: 20090926, end: 20090926
  35. MICAFUNGIN SODIUM [Concomitant]
     Dosage: UNK
     Dates: start: 20100808
  36. PIPERACILLIN SODIUM [Concomitant]
     Indication: INFECTION PROPHYLAXIS
     Dosage: UNK
     Dates: start: 20100204, end: 20100216
  37. IMIPEM [Concomitant]
     Indication: INFECTION PROPHYLAXIS
     Dosage: UNK
     Dates: start: 20100217, end: 20100222
  38. PLATELETS, CONCENTRATED [Concomitant]
     Dosage: UNK
     Dates: start: 20100217, end: 20100219
  39. PLATELETS, CONCENTRATED [Concomitant]
     Dosage: UNK
     Dates: start: 20100221, end: 20100224
  40. VINCRISTINE SULFATE [Concomitant]
     Dosage: UNK
     Dates: start: 20091120, end: 20091121
  41. GRANISETRON HCL [Concomitant]
     Indication: PROPHYLAXIS OF NAUSEA AND VOMITING
     Dosage: UNK
     Dates: start: 20100204, end: 20100314
  42. HYDROCORTISONE SODIUM SUCCINATE [Concomitant]
     Indication: PROPHYLAXIS OF NAUSEA AND VOMITING
     Dosage: UNK
     Dates: start: 20100204, end: 20100212
  43. METHYLPREDNISOLONE SODIUM SUCCINATE [Concomitant]
     Indication: PREMEDICATION
     Dosage: UNK
     Dates: start: 20100210, end: 20100211
  44. FILGRASTIM [Concomitant]
     Indication: WHITE BLOOD CELL COUNT
     Dosage: UNK
     Dates: start: 20100213, end: 20100226
  45. FLUCONAL [Concomitant]
     Indication: INFECTION PROPHYLAXIS
     Dosage: UNK
     Dates: start: 20100205, end: 20100402
  46. ETHYL ICOSAPENTATE [Concomitant]
     Indication: PROPHYLAXIS
     Dosage: UNK
     Dates: start: 20100205, end: 20100430
  47. PREDNISOLONE [Concomitant]
     Indication: PROPHYLAXIS AGAINST GRAFT VERSUS HOST DISEASE
     Dosage: UNK
     Dates: start: 20100225, end: 20100723
  48. GLUTATHIONE [Concomitant]
     Indication: PROPHYLAXIS
     Dosage: UNK
     Dates: start: 20100204, end: 20100401
  49. HYDROXYZINE HYDROCHLORIDE [Concomitant]
     Indication: PREMEDICATION
     Dosage: UNK
     Dates: start: 20100210, end: 20100806
  50. IFOSFAMIDE [Concomitant]
     Dosage: UNK
     Dates: start: 20090826, end: 20090828
  51. ETOPOSIDE [Concomitant]
     Indication: EWING'S SARCOMA RECURRENT
     Dosage: UNK
     Dates: start: 20090803, end: 20090805
  52. VINCRISTINE SULFATE [Concomitant]
     Indication: EWING'S SARCOMA RECURRENT
     Dosage: UNK
     Dates: start: 20091026, end: 20091028
  53. GLYCYRRHIZIN GLYCINE CYTEINE COMBINED [Concomitant]
     Indication: PROPHYLAXIS
     Dosage: UNK
     Dates: start: 20100204, end: 20100401
  54. HYDROCORTISONE SODIUM SUCCINATE [Concomitant]
     Indication: PREMEDICATION
  55. DALTEPARIN SODIUM [Concomitant]
     Indication: PROPHYLAXIS
     Dosage: UNK
     Dates: start: 20100204, end: 20100330
  56. PLATELETS, CONCENTRATED [Concomitant]
     Dosage: UNK
     Dates: start: 20100308, end: 20100308

REACTIONS (16)
  - FEBRILE NEUTROPENIA [None]
  - ACUTE GRAFT VERSUS HOST DISEASE IN INTESTINE [None]
  - DEPRESSION [None]
  - CHEST WALL MASS [None]
  - NAUSEA [None]
  - DIARRHOEA [None]
  - RADIATION PNEUMONITIS [None]
  - INSOMNIA [None]
  - MEMORY IMPAIRMENT [None]
  - DECREASED APPETITE [None]
  - ENCEPHALITIS HERPES [None]
  - HEPATIC FUNCTION ABNORMAL [None]
  - HYPONATRAEMIA [None]
  - ACUTE GRAFT VERSUS HOST DISEASE IN SKIN [None]
  - PNEUMONIA [None]
  - PANCREATITIS [None]
